FAERS Safety Report 24049565 (Version 1)
Quarter: 2024Q3

REPORT INFORMATION
  Report Type: Spontaneous
  Country: SE (occurrence: SE)
  Receive Date: 20240704
  Receipt Date: 20240704
  Transmission Date: 20241017
  Serious: Yes (Death, Other)
  Sender: GLAXOSMITHKLINE
  Company Number: None

PATIENT

DRUGS (2)
  1. BUPROPION HYDROCHLORIDE [Suspect]
     Active Substance: BUPROPION HYDROCHLORIDE
     Indication: Depression
     Dosage: UNK (VOXRA)
     Route: 048
     Dates: start: 20230801
  2. VORTIOXETINE [Suspect]
     Active Substance: VORTIOXETINE HYDROBROMIDE
     Indication: Depression
     Dosage: UNK (1TB)
     Route: 048
     Dates: start: 20231201

REACTIONS (6)
  - Feeling hot [Fatal]
  - Hallucination, visual [Fatal]
  - Erythema [Fatal]
  - Daydreaming [Fatal]
  - Completed suicide [Fatal]
  - Feeling abnormal [Fatal]

NARRATIVE: CASE EVENT DATE: 20231201
